FAERS Safety Report 12364247 (Version 1)
Quarter: 2016Q2

REPORT INFORMATION
  Report Type: Spontaneous
  Country: PT (occurrence: PT)
  Receive Date: 20160513
  Receipt Date: 20160513
  Transmission Date: 20160815
  Serious: Yes (Hospitalization, Other)
  Sender: FDA-Public Use
  Company Number: PT-VIIV HEALTHCARE LIMITED-PT2016GSK063082

PATIENT
  Age: 31 Year
  Sex: Male

DRUGS (3)
  1. RITONAVIR. [Concomitant]
     Active Substance: RITONAVIR
     Dosage: 100 MG, QD
  2. DARUNAVIR [Concomitant]
     Active Substance: DARUNAVIR
     Indication: HIV INFECTION
     Dosage: 800 MG, QD
  3. ABACAVIR SULFATE + LAMIVUDINE [Suspect]
     Active Substance: ABACAVIR SULFATE\LAMIVUDINE
     Indication: HIV INFECTION
     Dosage: UNK

REACTIONS (11)
  - Treatment noncompliance [Unknown]
  - No therapeutic response [Unknown]
  - Motor dysfunction [Unknown]
  - Persecutory delusion [Unknown]
  - Attention deficit/hyperactivity disorder [Unknown]
  - Delusion of grandeur [Unknown]
  - Abnormal behaviour [Unknown]
  - Aggression [Unknown]
  - Psychotic disorder [Unknown]
  - Hallucinations, mixed [Unknown]
  - AIDS dementia complex [Unknown]
